FAERS Safety Report 13575543 (Version 4)
Quarter: 2017Q2

REPORT INFORMATION
  Report Type: Report from Study
  Country: RU (occurrence: RU)
  Receive Date: 20170524
  Receipt Date: 20170630
  Transmission Date: 20170830
  Serious: Yes (Life-Threatening, Hospitalization)
  Sender: FDA-Public Use
  Company Number: RU-ROCHE-1931902

PATIENT
  Age: 68 Year
  Sex: Male
  Weight: 92 kg

DRUGS (13)
  1. PHOSPHALUGEL [Concomitant]
     Active Substance: ALUMINUM PHOSPHATE
     Indication: GASTRIC ULCER
     Route: 065
     Dates: start: 20170510
  2. DIUVER [Concomitant]
     Active Substance: TORSEMIDE
     Indication: OEDEMA PERIPHERAL
     Route: 065
     Dates: start: 20170518
  3. HEPTRAL [Concomitant]
     Active Substance: ADEMETIONINE
     Indication: DRUG-INDUCED LIVER INJURY
     Route: 065
     Dates: start: 20170521
  4. VEROSPIRONE [Concomitant]
     Indication: OEDEMA PERIPHERAL
     Route: 065
     Dates: start: 20170519
  5. CHLORHEXIDINE [Concomitant]
     Active Substance: CHLORHEXIDINE
     Indication: ASPIRATION PLEURAL CAVITY
     Route: 065
     Dates: start: 20170509, end: 20170509
  6. ORTANOL [Concomitant]
     Active Substance: OMEPRAZOLE
     Indication: GASTRIC ULCER
     Route: 065
     Dates: start: 20170522
  7. IVABRADINA [Concomitant]
     Indication: SINUS TACHYCARDIA
     Route: 065
     Dates: start: 20170519
  8. ATEZOLIZUMAB [Suspect]
     Active Substance: ATEZOLIZUMAB
     Indication: NON-SMALL CELL LUNG CANCER STAGE IV
     Dosage: DATE OF MOST RECENT DOSE OF ATEZOLIZUMAB PRIOR TO EVENTS 05/MAY/2017 AT 9:17
     Route: 042
     Dates: start: 20170505
  9. ALBUMIN [Concomitant]
     Active Substance: ALBUMIN HUMAN
     Indication: HYPOALBUMINAEMIA
     Route: 065
     Dates: start: 20170522, end: 20170523
  10. AMLODIPINE [Concomitant]
     Active Substance: AMLODIPINE BESYLATE
     Indication: HYPERTENSION
     Route: 065
     Dates: start: 201701
  11. LOSARTAN. [Concomitant]
     Active Substance: LOSARTAN
     Indication: HYPERTENSION
     Route: 065
     Dates: start: 201701
  12. PROCAINE [Concomitant]
     Active Substance: PROCAINE
     Indication: ANAESTHESIA
     Route: 065
     Dates: start: 20170509, end: 20170509
  13. BISOPROLOL [Concomitant]
     Active Substance: BISOPROLOL
     Indication: SINUS TACHYCARDIA
     Route: 065
     Dates: start: 201701

REACTIONS (2)
  - Hepatic function abnormal [Not Recovered/Not Resolved]
  - Gastric haemorrhage [Recovered/Resolved with Sequelae]

NARRATIVE: CASE EVENT DATE: 20170505
